FAERS Safety Report 7264701-2 (Version None)
Quarter: 2011Q1

REPORT INFORMATION
  Report Type: 
  Country: None (occurrence: None)
  Receive Date: 20110131
  Receipt Date: 20110121
  Transmission Date: 20110831
  Serious: Yes (Other)
  Sender: FDA-Public Use
  Company Number: JP-PFIZER INC-2010081936

PATIENT
  Age: 61 Year
  Sex: Female
  Weight: 52.6 kg

DRUGS (17)
  1. BLINDED NO SUBJECT DRUG [Suspect]
     Indication: RHEUMATOID ARTHRITIS
     Dosage: UNK
     Route: 048
     Dates: start: 20100215, end: 20100630
  2. FOLIAMIN [Suspect]
     Indication: RHEUMATOID ARTHRITIS
     Dosage: 5 MG, WEEKLY
     Route: 048
     Dates: start: 20090826, end: 20100629
  3. MICARDIS [Suspect]
     Indication: HYPERTENSION
     Dosage: 40 MG, 1X/DAY
     Route: 048
     Dates: start: 20080620
  4. ADETPHOS [Suspect]
     Indication: MENIERE'S DISEASE
     Dosage: UNK, AS NEEDED
     Route: 048
     Dates: start: 20080101
  5. BLINDED PLACEBO [Suspect]
     Indication: RHEUMATOID ARTHRITIS
     Dosage: UNK
     Route: 048
     Dates: start: 20100215, end: 20100630
  6. FOLIAMIN [Suspect]
     Dosage: 5 MG, WEEKLY
     Route: 048
     Dates: start: 20100727
  7. CEPHADOL [Suspect]
     Indication: MENIERE'S DISEASE
     Dosage: UNK, AS NEEDED
     Route: 048
     Dates: start: 20080101
  8. NORVASC [Suspect]
     Dosage: 5 MG, 1X/DAY
     Route: 048
     Dates: start: 20091024
  9. METHYCOBAL [Suspect]
     Indication: MENIERE'S DISEASE
     Dosage: UNK, AS NEEDED
     Route: 048
     Dates: start: 20080101
  10. CRAVIT [Suspect]
     Indication: CONJUNCTIVITIS ALLERGIC
     Dosage: UNK, 3X/DAY
     Route: 031
     Dates: start: 20090101
  11. FLUMETHOLON [Suspect]
     Indication: CONJUNCTIVITIS ALLERGIC
     Dosage: UNK, 3X/DAY
     Route: 031
     Dates: start: 20090101
  12. BLINDED CP-690,550 [Suspect]
     Indication: RHEUMATOID ARTHRITIS
     Dosage: UNK
     Route: 048
     Dates: start: 20100215, end: 20100630
  13. HYALEIN [Suspect]
     Indication: KERATOCONJUNCTIVITIS SICCA
     Dosage: UNK, 4X/DAY
     Route: 031
     Dates: start: 20090101
  14. ALFAROL [Suspect]
     Indication: OSTEOPOROSIS
     Dosage: 0.25 UG, 1X/DAY
     Route: 048
     Dates: start: 20041028
  15. OMEPRAL [Suspect]
     Indication: GASTRITIS PROPHYLAXIS
     Dosage: 10 MG, 1X/DAY
     Route: 048
     Dates: start: 20070629
  16. METHOTREXATE SODIUM [Suspect]
     Indication: RHEUMATOID ARTHRITIS
     Dosage: 10 MG, WEEKLY
     Route: 048
     Dates: start: 20091221, end: 20100628
  17. METHOTREXATE SODIUM [Suspect]
     Dosage: 10 MG, WEEKLY
     Route: 048
     Dates: start: 20100726

REACTIONS (1)
  - BASAL CELL CARCINOMA [None]
